FAERS Safety Report 6178586-9 (Version None)
Quarter: 2009Q2

REPORT INFORMATION
  Report Type: 
  Country: None (occurrence: None)
  Receive Date: 20090430
  Receipt Date: 20090421
  Transmission Date: 20091009
  Serious: Yes (Hospitalization)
  Sender: FDA-Public Use
  Company Number: CAP09000101

PATIENT

DRUGS (1)
  1. ETIDRONATE DISODIUM [Suspect]
     Dosage: 1 TABLET DAILY, ORAL
     Route: 048

REACTIONS (1)
  - CEREBROVASCULAR ACCIDENT [None]
